FAERS Safety Report 4423764-X (Version None)
Quarter: 2004Q3

REPORT INFORMATION
  Report Type: 
  Country: None (occurrence: None)
  Receive Date: 20040719
  Receipt Date: 20040420
  Transmission Date: 20050211
  Serious: No
  Sender: FDA-Public Use
  Company Number: A03200401224

PATIENT
  Sex: Male

DRUGS (4)
  1. UROXATRAL [Suspect]
     Dosage: NI, UNK; ORAL
     Route: 048
     Dates: start: 20040416
  2. HYDROCHLOROTHIAZIDE [Concomitant]
  3. LISINOPRIL [Concomitant]
  4. (UNSPECIFIED DIABETIC MEDICATIONS) [Concomitant]

REACTIONS (2)
  - BLOOD PRESSURE DECREASED [None]
  - FATIGUE [None]
